FAERS Safety Report 7028293-5 (Version None)
Quarter: 2010Q4

REPORT INFORMATION
  Report Type: 
  Country: None (occurrence: None)
  Receive Date: 20101005
  Receipt Date: 20100924
  Transmission Date: 20110411
  Serious: Yes (Other)
  Sender: FDA-Public Use
  Company Number: JP-ROCHE-671202

PATIENT
  Age: 66 Year
  Sex: Female
  Weight: 46 kg

DRUGS (24)
  1. TOCILIZUMAB [Suspect]
     Indication: RHEUMATOID ARTHRITIS
     Route: 041
     Dates: start: 20091022, end: 20091022
  2. TOCILIZUMAB [Suspect]
     Route: 041
     Dates: start: 20091130, end: 20091130
  3. TOCILIZUMAB [Suspect]
     Route: 041
     Dates: start: 20091228, end: 20091228
  4. TOCILIZUMAB [Suspect]
     Route: 041
     Dates: start: 20100201, end: 20100201
  5. TOCILIZUMAB [Suspect]
     Route: 041
     Dates: start: 20100301, end: 20100301
  6. TOCILIZUMAB [Suspect]
     Route: 041
     Dates: start: 20100329
  7. PREDNISOLONE [Concomitant]
     Dosage: DOSE FORM: PERORAL AGENT
     Route: 048
     Dates: end: 20100228
  8. PREDNISOLONE [Concomitant]
     Dosage: DOSE FORM: PERORAL AGENT
     Route: 048
     Dates: start: 20100301, end: 20100314
  9. PREDNISOLONE [Concomitant]
     Route: 048
     Dates: start: 20100315
  10. WARFARIN POTASSIUM [Concomitant]
     Route: 048
     Dates: end: 20091224
  11. WARFARIN POTASSIUM [Concomitant]
     Route: 048
     Dates: start: 20091225, end: 20100131
  12. WARFARIN POTASSIUM [Concomitant]
     Route: 048
     Dates: start: 20100201, end: 20100228
  13. WARFARIN POTASSIUM [Concomitant]
     Route: 048
     Dates: start: 20100301, end: 20100328
  14. WARFARIN POTASSIUM [Concomitant]
     Route: 048
     Dates: start: 20100329
  15. NEORAL [Concomitant]
     Route: 048
     Dates: start: 20090723
  16. PARIET [Concomitant]
     Route: 048
     Dates: start: 20090928
  17. AZELASTINE HCL [Concomitant]
     Route: 048
     Dates: start: 20090928
  18. CLINORIL [Concomitant]
     Route: 048
     Dates: start: 20090928, end: 20100108
  19. ALOSENN [Concomitant]
     Route: 048
     Dates: start: 20090928
  20. MUCOSTA [Concomitant]
     Route: 048
     Dates: start: 20090928
  21. KETOPROFEN [Concomitant]
     Dosage: NOTE: 1-2 PIECES, DOSE FORM: TAPE
     Route: 062
     Dates: start: 20091225
  22. INDOMETHACIN SODIUM [Concomitant]
     Dosage: DOSE FORM: EXTERNAL APPLICATION LIQUID MEDICINE NOTE: PROPER QUANTITY
     Route: 003
     Dates: start: 20091225
  23. HYPEN [Concomitant]
     Route: 048
     Dates: start: 20100109
  24. BLOPRESS [Concomitant]
     Route: 048
     Dates: start: 20100315

REACTIONS (1)
  - OEDEMA PERIPHERAL [None]
